FAERS Safety Report 7702859-9 (Version None)
Quarter: 2011Q3

REPORT INFORMATION
  Report Type: 
  Country: None (occurrence: None)
  Receive Date: 20110823
  Receipt Date: 20110816
  Transmission Date: 20111222
  Serious: Yes (Other)
  Sender: FDA-Public Use
  Company Number: US-TEVA-296786USA

PATIENT
  Sex: Female
  Weight: 72.64 kg

DRUGS (1)
  1. PARAGARD T 380A [Suspect]
     Indication: CONTRACEPTION
     Route: 015
     Dates: start: 20101101, end: 20110727

REACTIONS (3)
  - ENDOMETRIOSIS [None]
  - VAGINAL INFECTION [None]
  - ABDOMINAL PAIN [None]
